FAERS Safety Report 9847261 (Version 1)
Quarter: 2014Q1

REPORT INFORMATION
  Report Type: Spontaneous
  Country: US (occurrence: US)
  Receive Date: 20140127
  Receipt Date: 20140127
  Transmission Date: 20141002
  Serious: Yes (Hospitalization)
  Sender: FDA-Public Use
  Company Number: US-DYAX CORP.-2013DX000145

PATIENT
  Age: 37 Year
  Sex: Female

DRUGS (6)
  1. KALBITOR [Suspect]
     Indication: HEREDITARY ANGIOEDEMA
     Route: 058
     Dates: start: 20130731, end: 20130731
  2. KALBITOR [Suspect]
     Route: 058
     Dates: start: 20130801, end: 20130801
  3. KALBITOR [Suspect]
     Route: 058
  4. CINRYZE [Concomitant]
     Indication: HEREDITARY ANGIOEDEMA
     Route: 042
  5. BENADRYL [Concomitant]
     Indication: PREMEDICATION
     Route: 030
     Dates: start: 20130731, end: 20130731
  6. BENADRYL [Concomitant]
     Route: 065
     Dates: start: 20130801, end: 20130801

REACTIONS (1)
  - Hereditary angioedema [Recovering/Resolving]
